FAERS Safety Report 8518043-5 (Version None)
Quarter: 2012Q3

REPORT INFORMATION
  Report Type: 
  Country: None (occurrence: None)
  Receive Date: 20120718
  Receipt Date: 20110829
  Transmission Date: 20120928
  Serious: No
  Sender: FDA-Public Use
  Company Number: US-BRISTOL-MYERS SQUIBB COMPANY-15989122

PATIENT
  Age: 81 Year
  Sex: Female
  Weight: 82 kg

DRUGS (6)
  1. WARFARIN SODIUM [Suspect]
     Indication: ATRIAL FIBRILLATION
     Dosage: 1DF= 5MG FOR 5DAYS AND 2.5MG FOR 2DAYS A WEEK.
  2. TENORMIN [Concomitant]
     Dosage: 1DF=1 TABLET
  3. ASPIRIN [Concomitant]
     Dosage: 1DF=1 TABLET
  4. FISH OIL [Concomitant]
  5. PLAVIX [Suspect]
     Indication: STENT PLACEMENT
     Dosage: IT HAD FOUL SMELL
     Route: 048
     Dates: start: 20100901
  6. LASIX [Concomitant]

REACTIONS (3)
  - WEIGHT INCREASED [None]
  - FIBROMYALGIA [None]
  - RASH MACULAR [None]
